FAERS Safety Report 6960539-1 (Version None)
Quarter: 2010Q3

REPORT INFORMATION
  Report Type: 
  Country: None (occurrence: None)
  Receive Date: 20100901
  Receipt Date: 20100820
  Transmission Date: 20110219
  Serious: Yes (Hospitalization, Other)
  Sender: FDA-Public Use
  Company Number: JP-JNJFOC-20100801699

PATIENT
  Sex: Male
  Weight: 49 kg

DRUGS (14)
  1. DUROTEP MT [Suspect]
     Indication: CANCER PAIN
     Route: 062
  2. DUROTEP MT [Suspect]
     Route: 062
  3. DUROTEP MT [Suspect]
     Route: 062
  4. DUROTEP MT [Suspect]
     Route: 062
  5. OXYCODONE HCL [Concomitant]
     Indication: CANCER PAIN
     Dosage: 10MG-20MG/DAY.
     Route: 048
  6. URINORM [Concomitant]
     Indication: HYPERURICAEMIA
     Route: 048
  7. GOSHA-JINKI-GAN [Concomitant]
     Indication: NEUROPATHY PERIPHERAL
     Route: 048
  8. VANCOMIN [Concomitant]
     Indication: NEUROPATHY PERIPHERAL
     Route: 048
  9. PALGIN (ETIZOLAM) [Concomitant]
     Indication: INSOMNIA
     Route: 048
  10. ENDOXAN [Concomitant]
     Indication: MULTIPLE MYELOMA
     Route: 048
  11. DECADRON [Concomitant]
     Indication: MULTIPLE MYELOMA
     Route: 048
  12. BACTRAMIN [Concomitant]
     Indication: BRONCHITIS
     Dosage: 4 DF 1 PER 1 DAY
     Route: 048
  13. LEVOFLOXACIN [Concomitant]
     Indication: PNEUMONIA
     Route: 048
  14. VELCADE [Concomitant]
     Indication: MULTIPLE MYELOMA
     Route: 042

REACTIONS (10)
  - ACTIVITIES OF DAILY LIVING IMPAIRED [None]
  - ALTERED STATE OF CONSCIOUSNESS [None]
  - ASPARTATE AMINOTRANSFERASE INCREASED [None]
  - ASTHENIA [None]
  - BLOOD CALCIUM INCREASED [None]
  - BLOOD LACTATE DEHYDROGENASE INCREASED [None]
  - OVERDOSE [None]
  - PAIN [None]
  - RHABDOMYOLYSIS [None]
  - TREMOR [None]
